FAERS Safety Report 25214907 (Version 4)
Quarter: 2025Q3

REPORT INFORMATION
  Report Type: Report from Study
  Country: JP (occurrence: JP)
  Receive Date: 20250418
  Receipt Date: 20250724
  Transmission Date: 20251021
  Serious: Yes (Hospitalization)
  Sender: EISAI
  Company Number: JP-Eisai-EC-2024-174509

PATIENT
  Age: 72 Year
  Sex: Female
  Weight: 62 kg

DRUGS (33)
  1. LENVIMA [Suspect]
     Active Substance: LENVATINIB
     Indication: Endometrial cancer recurrent
     Dates: start: 20240122, end: 20240215
  2. LENVIMA [Suspect]
     Active Substance: LENVATINIB
     Dates: start: 20240302, end: 20240405
  3. LENVIMA [Suspect]
     Active Substance: LENVATINIB
     Dates: start: 20240420, end: 20240510
  4. LENVIMA [Suspect]
     Active Substance: LENVATINIB
     Dates: start: 20240519, end: 20240531
  5. LENVIMA [Suspect]
     Active Substance: LENVATINIB
     Dates: start: 20240608, end: 20240621
  6. LENVIMA [Suspect]
     Active Substance: LENVATINIB
     Dates: start: 20240629, end: 20240712
  7. LENVIMA [Suspect]
     Active Substance: LENVATINIB
     Dates: start: 20240720, end: 20240802
  8. LENVIMA [Suspect]
     Active Substance: LENVATINIB
     Dates: start: 20240810, end: 20240823
  9. LENVIMA [Suspect]
     Active Substance: LENVATINIB
     Dates: start: 20240831, end: 20240913
  10. LENVIMA [Suspect]
     Active Substance: LENVATINIB
     Dates: start: 20240921, end: 20241004
  11. LENVIMA [Suspect]
     Active Substance: LENVATINIB
     Dates: start: 20241012, end: 20241025
  12. LENVIMA [Suspect]
     Active Substance: LENVATINIB
     Dates: start: 20241102, end: 20241115
  13. LENVIMA [Suspect]
     Active Substance: LENVATINIB
     Dates: start: 20241123, end: 20241206
  14. LENVIMA [Suspect]
     Active Substance: LENVATINIB
     Dates: start: 20241214, end: 20241227
  15. KEYTRUDA [Suspect]
     Active Substance: PEMBROLIZUMAB
     Indication: Endometrial cancer recurrent
     Dates: start: 20240122, end: 20240122
  16. KEYTRUDA [Suspect]
     Active Substance: PEMBROLIZUMAB
     Dates: start: 20240308, end: 20240308
  17. KEYTRUDA [Suspect]
     Active Substance: PEMBROLIZUMAB
     Dates: start: 20240419, end: 20240419
  18. KEYTRUDA [Suspect]
     Active Substance: PEMBROLIZUMAB
     Dates: start: 20240517, end: 20240517
  19. KEYTRUDA [Suspect]
     Active Substance: PEMBROLIZUMAB
     Dates: start: 20240607, end: 20240607
  20. KEYTRUDA [Suspect]
     Active Substance: PEMBROLIZUMAB
     Dates: start: 20240628, end: 20240628
  21. KEYTRUDA [Suspect]
     Active Substance: PEMBROLIZUMAB
     Dates: start: 20240719, end: 20240719
  22. KEYTRUDA [Suspect]
     Active Substance: PEMBROLIZUMAB
     Dates: start: 20240809, end: 20240809
  23. KEYTRUDA [Suspect]
     Active Substance: PEMBROLIZUMAB
     Dates: start: 20240830, end: 20240830
  24. KEYTRUDA [Suspect]
     Active Substance: PEMBROLIZUMAB
     Dates: start: 20240920, end: 20240920
  25. KEYTRUDA [Suspect]
     Active Substance: PEMBROLIZUMAB
     Dates: start: 20241011, end: 20241011
  26. KEYTRUDA [Suspect]
     Active Substance: PEMBROLIZUMAB
     Dates: start: 20241101, end: 20241101
  27. KEYTRUDA [Suspect]
     Active Substance: PEMBROLIZUMAB
     Dates: start: 20241122, end: 20241122
  28. KEYTRUDA [Suspect]
     Active Substance: PEMBROLIZUMAB
     Dates: start: 20241213, end: 20241213
  29. KEYTRUDA [Suspect]
     Active Substance: PEMBROLIZUMAB
     Dates: start: 20250131, end: 20250131
  30. KEYTRUDA [Suspect]
     Active Substance: PEMBROLIZUMAB
     Dates: start: 20250221, end: 20250221
  31. KEYTRUDA [Suspect]
     Active Substance: PEMBROLIZUMAB
     Dates: start: 20250314, end: 20250314
  32. LEVOTHYROXINE SODIUM [Concomitant]
     Active Substance: LEVOTHYROXINE SODIUM
     Indication: Hypothyroidism
     Dates: start: 20240706, end: 20240830
  33. LEVOTHYROXINE SODIUM [Concomitant]
     Active Substance: LEVOTHYROXINE SODIUM
     Dates: start: 20240831

REACTIONS (1)
  - Pyelonephritis [Recovered/Resolved]

NARRATIVE: CASE EVENT DATE: 20250108
